FAERS Safety Report 8623303-3 (Version None)
Quarter: 2012Q3

REPORT INFORMATION
  Report Type: 
  Country: None (occurrence: None)
  Receive Date: 20120827
  Receipt Date: 20120816
  Transmission Date: 20120928
  Serious: Yes (Other)
  Sender: FDA-Public Use
  Company Number: US-ELI_LILLY_AND_COMPANY-US201208005991

PATIENT
  Age: 16 Year
  Sex: Male

DRUGS (1)
  1. STRATTERA [Suspect]
     Dosage: 60 MG, UNKNOWN

REACTIONS (1)
  - PANCREATIC INSUFFICIENCY [None]
